FAERS Safety Report 9739221 (Version 3)
Quarter: 2014Q1

REPORT INFORMATION
  Report Type: Other
  Country: NL (occurrence: NL)
  Receive Date: 20131209
  Receipt Date: 20140311
  Transmission Date: 20141002
  Serious: Yes (Death)
  Sender: FDA-Public Use
  Company Number: NL-SHIRE-ALL1-2013-08493

PATIENT
  Age: 66 Year
  Sex: Female

DRUGS (1)
  1. VPRIV [Suspect]
     Indication: GAUCHER^S DISEASE
     Dosage: UNK UNK, UNKNOWN
     Route: 041
     Dates: start: 201003, end: 201311

REACTIONS (1)
  - Breast cancer recurrent [Fatal]
